FAERS Safety Report 4335836-9 (Version None)
Quarter: 2004Q2

REPORT INFORMATION
  Report Type: 
  Country: None (occurrence: None)
  Receive Date: 20040406
  Receipt Date: 20040326
  Transmission Date: 20050107
  Serious: Yes (Other)
  Sender: FDA-Public Use
  Company Number: 7716

PATIENT
  Age: 25 Year
  Sex: Female
  Weight: 65.5 kg

DRUGS (3)
  1. METHOTREXATE [Suspect]
     Indication: PREGNANCY
     Dosage: 100 MG/M2 ONCE IV
     Route: 042
  2. METHOTREXATE [Suspect]
     Indication: PREGNANCY
     Dosage: 200 MG/M2 ONCE IV
     Route: 042
  3. LEUCOVORIN CALCIUM [Concomitant]

REACTIONS (2)
  - BLOOD HUMAN CHORIONIC GONADOTROPIN DECREASED [None]
  - DRUG EXPOSURE DURING PREGNANCY [None]
